FAERS Safety Report 10137192 (Version 1)
Quarter: 2014Q2

REPORT INFORMATION
  Report Type: Report from Study
  Country: US (occurrence: US)
  Receive Date: 20140429
  Receipt Date: 20140429
  Transmission Date: 20141212
  Serious: No
  Sender: FDA-Public Use
  Company Number: US-ABBVIE-14P-163-1215756-00

PATIENT
  Age: 62 Year
  Sex: Male
  Weight: 97.61 kg

DRUGS (5)
  1. ANDROGEL [Suspect]
     Indication: BLOOD TESTOSTERONE DECREASED
     Dosage: 2 PUMPS DAILY
     Route: 061
     Dates: start: 2011, end: 20140314
  2. ANDROGEL [Suspect]
     Indication: BLOOD TESTOSTERONE DECREASED
     Dates: start: 1998, end: 2011
  3. NAPROXEN [Concomitant]
     Indication: PRODUCT USED FOR UNKNOWN INDICATION
  4. MULTIVITAMIN [Concomitant]
     Indication: VITAMIN SUPPLEMENTATION
  5. PROTEIN SUPPLEMENTS [Concomitant]
     Indication: SUPPLEMENTATION THERAPY

REACTIONS (4)
  - Discomfort [Not Recovered/Not Resolved]
  - Hyperhidrosis [Not Recovered/Not Resolved]
  - Fatigue [Not Recovered/Not Resolved]
  - Poor quality sleep [Not Recovered/Not Resolved]
